FAERS Safety Report 4781323-3 (Version None)
Quarter: 2005Q3

REPORT INFORMATION
  Report Type: 
  Country: None (occurrence: None)
  Receive Date: 20050914
  Receipt Date: 20050627
  Transmission Date: 20060218
  Serious: No
  Sender: FDA-Public Use
  Company Number: IND-AE-05-SAN-037

PATIENT
  Age: 73 Year
  Sex: Female

DRUGS (1)
  1. SANCTURA [Suspect]
     Indication: HYPERTONIC BLADDER
     Dosage: 20MG QD; ORAL
     Route: 048
     Dates: start: 20050622, end: 20050622

REACTIONS (1)
  - CHEST PAIN [None]
